FAERS Safety Report 8083013-0 (Version None)
Quarter: 2012Q1

REPORT INFORMATION
  Report Type: 
  Country: None (occurrence: None)
  Receive Date: 20120127
  Receipt Date: 20110302
  Transmission Date: 20120608
  Serious: No
  Sender: FDA-Public Use
  Company Number: US-ABBOTT-11P-163-0708419-00

PATIENT
  Sex: Female

DRUGS (6)
  1. HUMIRA [Suspect]
     Indication: PSORIASIS
     Route: 058
     Dates: start: 20101206, end: 20110201
  2. AMITRIPTYLINE HCL [Concomitant]
     Indication: PRODUCT USED FOR UNKNOWN INDICATION
  3. LORTAB [Concomitant]
     Indication: PRODUCT USED FOR UNKNOWN INDICATION
     Dosage: PRN
  4. TACLONEX [Concomitant]
     Indication: PSORIASIS
     Route: 061
  5. TOPAMAX [Concomitant]
     Indication: INTRACRANIAL ANEURYSM
  6. TRETINOIN [Concomitant]
     Indication: SKIN WRINKLING
     Route: 061

REACTIONS (2)
  - HAEMATOCHEZIA [None]
  - ABDOMINAL PAIN [None]
